FAERS Safety Report 15076894 (Version 1)
Quarter: 2018Q2

REPORT INFORMATION
  Report Type: Spontaneous
  Country: PK (occurrence: PK)
  Receive Date: 20180627
  Receipt Date: 20180627
  Transmission Date: 20180711
  Serious: Yes (Hospitalization)
  Sender: FDA-Public Use
  Company Number: PHHY2018PK031349

PATIENT
  Age: 50 Year
  Sex: Female
  Weight: 70 kg

DRUGS (7)
  1. NEOMERCAZOLE [Concomitant]
     Active Substance: CARBIMAZOLE
     Indication: HYPOTHYROIDISM
     Dosage: UNK
     Route: 065
  2. LEVOFLOXACIN. [Suspect]
     Active Substance: LEVOFLOXACIN
     Indication: PULMONARY TUBERCULOSIS
     Dosage: 1000 MG, QD
     Route: 030
     Dates: start: 20171205
  3. CLOFAZIMINE [Suspect]
     Active Substance: CLOFAZIMINE
     Indication: PULMONARY TUBERCULOSIS
     Dosage: 100 MG, QD
     Route: 065
     Dates: start: 20171205
  4. DELAMANID [Suspect]
     Active Substance: DELAMANID
     Indication: PULMONARY TUBERCULOSIS
     Dosage: 200 MG, QD
     Route: 048
     Dates: start: 20171205
  5. VITAMIN B6 [Concomitant]
     Active Substance: PYRIDOXINE HYDROCHLORIDE
     Indication: NEUROPATHY PERIPHERAL
     Dosage: UNK
     Route: 065
     Dates: start: 20171205
  6. LINEZOLID. [Suspect]
     Active Substance: LINEZOLID
     Indication: PULMONARY TUBERCULOSIS
     Dosage: 600 MG, QD
     Route: 048
     Dates: start: 20171205, end: 20180511
  7. CYCLOSERINE. [Suspect]
     Active Substance: CYCLOSERINE
     Indication: PULMONARY TUBERCULOSIS
     Dosage: 500 MG, QD
     Route: 048
     Dates: start: 20171205

REACTIONS (5)
  - Anaemia [Unknown]
  - Headache [Unknown]
  - Paraesthesia [Unknown]
  - Drug intolerance [Unknown]
  - Palpitations [Unknown]

NARRATIVE: CASE EVENT DATE: 20180427
